FAERS Safety Report 7915408-7 (Version None)
Quarter: 2011Q4

REPORT INFORMATION
  Report Type: 
  Country: None (occurrence: None)
  Receive Date: 20111115
  Receipt Date: 20111110
  Transmission Date: 20120403
  Serious: Yes (Life-Threatening, Hospitalization, Other)
  Sender: FDA-Public Use
  Company Number: US-US-EMD SERONO, INC.-7029958

PATIENT
  Sex: Female

DRUGS (2)
  1. REBIF [Suspect]
     Indication: MULTIPLE SCLEROSIS
     Route: 058
     Dates: start: 20100917, end: 20110701
  2. VITAMIN TAB [Concomitant]

REACTIONS (8)
  - RENAL CANCER [None]
  - HIATUS HERNIA [None]
  - GASTRIC HAEMORRHAGE [None]
  - MULTIPLE SCLEROSIS [None]
  - SUICIDAL BEHAVIOUR [None]
  - TRANSIENT ISCHAEMIC ATTACK [None]
  - FALL [None]
  - BACK PAIN [None]
